FAERS Safety Report 22138491 (Version 1)
Quarter: 2023Q1

REPORT INFORMATION
  Report Type: Spontaneous
  Country: DK (occurrence: DK)
  Receive Date: 20230326
  Receipt Date: 20230326
  Transmission Date: 20230418
  Serious: Yes (Hospitalization)
  Sender: FDA-Public Use
  Company Number: None

PATIENT
  Age: 69 Year
  Sex: Male
  Weight: 55 kg

DRUGS (8)
  1. PREDNISOLONE [Suspect]
     Active Substance: PREDNISOLONE
     Indication: Polymyalgia rheumatica
     Dosage: DOSAGE: UNKNOWN.
     Route: 065
     Dates: start: 20221010
  2. METFORMIN HYDROCHLORIDE [Concomitant]
     Active Substance: METFORMIN HYDROCHLORIDE
     Indication: Type 2 diabetes mellitus
     Route: 065
     Dates: start: 20160816
  3. LIPISTAD [Concomitant]
     Indication: Hypercholesterolaemia
     Route: 065
     Dates: start: 20160816
  4. MORPHINE SULFATE [Concomitant]
     Active Substance: MORPHINE SULFATE
     Indication: Pain
     Route: 065
     Dates: start: 20220922
  5. SALAZOPYRIN ENTABS [Concomitant]
     Indication: Rheumatoid arthritis
     Dosage: UNKNOWN START DATE BUT AT LEAST SINCE 14APR2021
     Route: 065
  6. LANSOPRAZOL ^KRKA^ [Concomitant]
     Indication: Gastric pH decreased
     Route: 065
     Dates: start: 20220104
  7. CLOPIDOGREL BISULFATE [Concomitant]
     Active Substance: CLOPIDOGREL BISULFATE
     Indication: Thrombosis prophylaxis
     Route: 065
     Dates: start: 20160304
  8. METHOTREXATE [Concomitant]
     Active Substance: METHOTREXATE
     Indication: Rheumatoid arthritis
     Route: 065
     Dates: start: 20210607

REACTIONS (1)
  - Pneumonia bacterial [Not Recovered/Not Resolved]

NARRATIVE: CASE EVENT DATE: 20221104
